FAERS Safety Report 24563722 (Version 2)
Quarter: 2024Q4

REPORT INFORMATION
  Report Type: Report from Study
  Country: US (occurrence: US)
  Receive Date: 20241030
  Receipt Date: 20241129
  Transmission Date: 20250115
  Serious: Yes (Hospitalization, Other)
  Sender: INSMED
  Company Number: US-INSMED-2021-09503-USAA

PATIENT
  Sex: Female
  Weight: 60.317 kg

DRUGS (4)
  1. ARIKAYCE [Suspect]
     Active Substance: AMIKACIN
     Indication: Mycobacterium avium complex infection
     Dosage: 590 MILLIGRAM, TIW
     Route: 055
     Dates: start: 2021
  2. ARIKAYCE [Suspect]
     Active Substance: AMIKACIN
     Dosage: UNK, QOD
     Route: 055
     Dates: start: 20240816, end: 202408
  3. ARIKAYCE [Suspect]
     Active Substance: AMIKACIN
     Dosage: 590 MILLIGRAM, QD
     Route: 055
     Dates: start: 20240818, end: 2024
  4. ARIKAYCE [Suspect]
     Active Substance: AMIKACIN
     Dosage: UNK, QOD
     Route: 055
     Dates: start: 2024, end: 202409

REACTIONS (17)
  - Hospitalisation [Unknown]
  - Pneumonia [Not Recovered/Not Resolved]
  - Vision blurred [Recovered/Resolved]
  - Fall [Recovered/Resolved]
  - Rhinorrhoea [Unknown]
  - Sputum increased [Not Recovered/Not Resolved]
  - Productive cough [Unknown]
  - Aphonia [Not Recovered/Not Resolved]
  - Cough [Not Recovered/Not Resolved]
  - Diarrhoea [Recovered/Resolved]
  - Nausea [Not Recovered/Not Resolved]
  - Fatigue [Not Recovered/Not Resolved]
  - Dysphonia [Unknown]
  - Dyspnoea [Not Recovered/Not Resolved]
  - Off label use [Unknown]
  - Drug ineffective [Unknown]
  - Therapy interrupted [Unknown]

NARRATIVE: CASE EVENT DATE: 20210101
